FAERS Safety Report 5838559-X (Version None)
Quarter: 2008Q3

REPORT INFORMATION
  Report Type: 
  Country: None (occurrence: None)
  Receive Date: 20080808
  Receipt Date: 20080728
  Transmission Date: 20090109
  Serious: Yes (Other)
  Sender: FDA-Public Use
  Company Number: JP-JNJFOC-20070605231

PATIENT
  Sex: Female
  Weight: 43 kg

DRUGS (20)
  1. REMICADE [Suspect]
     Route: 042
  2. REMICADE [Suspect]
     Route: 042
  3. REMICADE [Suspect]
     Route: 042
  4. REMICADE [Suspect]
     Route: 042
  5. REMICADE [Suspect]
     Route: 042
  6. REMICADE [Suspect]
     Route: 042
  7. REMICADE [Suspect]
     Route: 042
  8. REMICADE [Suspect]
     Indication: RHEUMATOID ARTHRITIS
     Route: 042
  9. ISONIAZID [Suspect]
     Indication: ANTIBIOTIC PROPHYLAXIS
     Route: 048
  10. ADRENAL HORMONE PREPARATIONS [Concomitant]
     Indication: RHEUMATOID ARTHRITIS
  11. VOLTAREN [Concomitant]
     Indication: RHEUMATOID ARTHRITIS
     Route: 048
  12. PANTOSIN [Concomitant]
     Indication: RHEUMATOID ARTHRITIS
     Route: 048
  13. KAMAG G [Concomitant]
     Indication: RHEUMATOID ARTHRITIS
     Route: 048
  14. FOLIAMIN [Concomitant]
     Route: 048
  15. RHEUMATREX [Concomitant]
     Indication: RHEUMATOID ARTHRITIS
     Route: 048
  16. PREDNISOLONE [Concomitant]
     Route: 048
  17. PREDNISOLONE [Concomitant]
     Route: 048
  18. PREDNISOLONE [Concomitant]
     Indication: RHEUMATOID ARTHRITIS
     Route: 048
  19. FAMOTIDINE [Concomitant]
     Route: 048
  20. KELNAC [Concomitant]
     Route: 048

REACTIONS (2)
  - ATYPICAL MYCOBACTERIAL INFECTION [None]
  - MYCOBACTERIUM AVIUM COMPLEX INFECTION [None]
